FAERS Safety Report 9166699 (Version 1)
Quarter: 2013Q1

REPORT INFORMATION
  Report Type: Spontaneous
  Country: CN (occurrence: CN)
  Receive Date: 20130315
  Receipt Date: 20130315
  Transmission Date: 20140127
  Serious: Yes (Other)
  Sender: FDA-Public Use
  Company Number: CN-BAXTER-2013BAX009599

PATIENT
  Age: 82 Year
  Sex: Female
  Weight: 65 kg

DRUGS (8)
  1. LOW CALCIUM PERITONEAL DIALYSIS SOLUTION ( LACTATE- G1.5%) [Suspect]
     Indication: PERITONEAL DIALYSIS
     Route: 033
  2. LOW CALCIUM PERITONEAL DIALYSIS SOLUTION ( LACTATE- G2.5%) [Suspect]
     Indication: PERITONEAL DIALYSIS
     Route: 033
  3. FELODIPINE [Concomitant]
     Indication: HYPERTENSION
     Route: 048
  4. HYDROCHLORIC ACID CARAT TERAZOSIN [Concomitant]
     Indication: HYPERTENSION
     Route: 048
  5. VALSARTAN [Concomitant]
     Indication: HYPERTENSION
     Route: 048
  6. RECOMBINANT HUMAN ERYTHROPOIETIN [Concomitant]
     Indication: PRODUCT USED FOR UNKNOWN INDICATION
     Dosage: 3000U
     Route: 030
  7. METOPROLOL TARTRATE [Concomitant]
     Indication: HYPERTENSION
     Route: 048
     Dates: start: 20130208
  8. PHENOLPHTHALEIN [Concomitant]
     Indication: PRODUCT USED FOR UNKNOWN INDICATION
     Route: 048
     Dates: start: 20130208

REACTIONS (3)
  - Cardiac failure [Not Recovered/Not Resolved]
  - Constipation [Recovered/Resolved]
  - Hypertension [Not Recovered/Not Resolved]
